FAERS Safety Report 4616290-6 (Version None)
Quarter: 2005Q1

REPORT INFORMATION
  Report Type: 
  Country: None (occurrence: None)
  Receive Date: 20050321
  Receipt Date: 20050307
  Transmission Date: 20050727
  Serious: Yes (Death, Other)
  Sender: FDA-Public Use
  Company Number: 2005018998

PATIENT
  Age: 59 Year
  Sex: Male

DRUGS (3)
  1. LIPITOR [Suspect]
     Indication: LOW DENSITY LIPOPROTEIN INCREASED
     Dosage: 60 MG 1 IN 1 D, ORAL
     Route: 048
  2. CITRUS PARADISI FRUIT JUINC (CITRUS PARADISI FRUIT JUICE) [Suspect]
     Indication: ILL-DEFINED DISORDER
     Dosage: 2-3 GLASSES JUICE 1-D, ORAL
     Route: 048
  3. PRAVASTATIN SODIUM [Suspect]
     Indication: LIPIDS ABNORMAL

REACTIONS (5)
  - DRUG LEVEL INCREASED [None]
  - FOOD INTERACTION [None]
  - PYREXIA [None]
  - RENAL FAILURE [None]
  - RHABDOMYOLYSIS [None]
